FAERS Safety Report 7197729-1 (Version None)
Quarter: 2010Q4

REPORT INFORMATION
  Report Type: 
  Country: None (occurrence: None)
  Receive Date: 20101213
  Receipt Date: 20101206
  Transmission Date: 20110411
  Serious: No
  Sender: FDA-Public Use
  Company Number: 2010120013

PATIENT
  Age: 3 Year
  Sex: Female

DRUGS (1)
  1. EDLUAR [Suspect]
     Indication: ACCIDENTAL EXPOSURE
     Dosage: (1 IN 1 D), SUBLINGUAL
     Route: 060
     Dates: start: 20101202, end: 20101202

REACTIONS (5)
  - ACCIDENTAL DRUG INTAKE BY CHILD [None]
  - FALL [None]
  - HEAD INJURY [None]
  - PSYCHOMOTOR HYPERACTIVITY [None]
  - SOMNOLENCE [None]
